FAERS Safety Report 5833242-9 (Version None)
Quarter: 2008Q3

REPORT INFORMATION
  Report Type: 
  Country: None (occurrence: None)
  Receive Date: 20080801
  Receipt Date: 20080721
  Transmission Date: 20090109
  Serious: Yes (Hospitalization)
  Sender: FDA-Public Use
  Company Number: 15159

PATIENT
  Age: 40 Year
  Sex: Female
  Weight: 72.5755 kg

DRUGS (3)
  1. MORPHINE SULFATE [Suspect]
     Indication: FACIAL PAIN
     Dosage: 60 MG TID OR QID ORALLY
     Route: 048
     Dates: start: 20080315, end: 20080316
  2. EFFEXOR XR [Concomitant]
  3. ^INOPRIL^ [Concomitant]

REACTIONS (4)
  - FEELING ABNORMAL [None]
  - OVERDOSE [None]
  - PHARMACEUTICAL PRODUCT COMPLAINT [None]
  - UNRESPONSIVE TO STIMULI [None]
